FAERS Safety Report 19264026 (Version 4)
Quarter: 2021Q3

REPORT INFORMATION
  Report Type: Report from Study
  Country: None (occurrence: CA)
  Receive Date: 20210517
  Receipt Date: 20210714
  Transmission Date: 20211014
  Serious: Yes (Hospitalization, Other)
  Sender: FDA-Public Use
  Company Number: CA-ABBVIE-21K-028-3903892-00

PATIENT
  Age: 74 Year
  Sex: Female

DRUGS (2)
  1. HUMIRA [Suspect]
     Active Substance: ADALIMUMAB
     Route: 058
     Dates: start: 20210622
  2. HUMIRA [Suspect]
     Active Substance: ADALIMUMAB
     Indication: PSORIATIC ARTHROPATHY
     Route: 058
     Dates: start: 20191211, end: 202105

REACTIONS (13)
  - Wound [Recovering/Resolving]
  - Crohn^s disease [Recovering/Resolving]
  - Nausea [Unknown]
  - Small intestinal obstruction [Unknown]
  - Ileal ulcer [Unknown]
  - Intestinal polyp [Unknown]
  - Inflammatory bowel disease [Not Recovered/Not Resolved]
  - Intestinal dilatation [Unknown]
  - Adenocarcinoma of colon [Not Recovered/Not Resolved]
  - Asthenia [Unknown]
  - Fluid intake reduced [Unknown]
  - Intestinal obstruction [Unknown]
  - Abdominal distension [Unknown]

NARRATIVE: CASE EVENT DATE: 2021
